FAERS Safety Report 9352836 (Version 3)
Quarter: 2014Q2

REPORT INFORMATION
  Report Type: Spontaneous
  Country: US (occurrence: US)
  Receive Date: 20130618
  Receipt Date: 20140528
  Transmission Date: 20141212
  Serious: Yes (Death, Other)
  Sender: FDA-Public Use
  Company Number: US-CELGENEUS-163-21880-13061190

PATIENT
  Sex: Male

DRUGS (1)
  1. REVLIMID [Suspect]
     Indication: PLASMACYTOMA
     Route: 048
     Dates: start: 2008

REACTIONS (4)
  - Death [Fatal]
  - Plasma cell myeloma recurrent [Fatal]
  - Myelodysplastic syndrome [Unknown]
  - Plasmacytoma [Unknown]
